FAERS Safety Report 4330924-5 (Version None)
Quarter: 2004Q1

REPORT INFORMATION
  Report Type: 
  Country: None (occurrence: None)
  Receive Date: 20040329
  Receipt Date: 20040315
  Transmission Date: 20041129
  Serious: Yes (Hospitalization)
  Sender: FDA-Public Use
  Company Number: US-JNJFOC-20040303821

PATIENT
  Age: 73 Year
  Sex: Female

DRUGS (11)
  1. INFLIXIMAB (INFLIXIMAB, RECOMBINANT) LYOPHILIZED POWDER [Suspect]
     Indication: RHEUMATOID ARTHRITIS
     Dosage: INTRAVENOUS
     Route: 042
     Dates: start: 20000815
  2. PREDNISONE [Concomitant]
  3. VIOXX [Concomitant]
  4. PREMARIN [Concomitant]
  5. TEGRETOL [Concomitant]
  6. MULTIVITAMIN [Concomitant]
  7. LIPITOR [Concomitant]
  8. CALCIUM + D (CALCIUM) [Concomitant]
  9. GLUCOSAMINE (GLUCOSAMINE) [Concomitant]
  10. LOTENSIN [Concomitant]
  11. SYNTHROID [Concomitant]

REACTIONS (1)
  - ULCER HAEMORRHAGE [None]
